FAERS Safety Report 7573586-6 (Version None)
Quarter: 2011Q2

REPORT INFORMATION
  Report Type: 
  Country: None (occurrence: None)
  Receive Date: 20110627
  Receipt Date: 20110620
  Transmission Date: 20111010
  Serious: No
  Sender: FDA-Public Use
  Company Number: US-PFIZER INC-2011136163

PATIENT
  Sex: Female
  Weight: 41.723 kg

DRUGS (3)
  1. NICOTROL [Suspect]
     Indication: SMOKING CESSATION THERAPY
     Dosage: 10 MG, AS NEEDED
     Dates: start: 20110601
  2. CLONAZEPAM [Concomitant]
     Indication: ANXIETY
     Dosage: UNK, 2X/DAY
  3. TRAZODONE [Concomitant]
     Indication: SLEEP DISORDER
     Dosage: 100 MG, 1X/DAY AT NIGHT

REACTIONS (5)
  - NAUSEA [None]
  - NERVOUSNESS [None]
  - FRUSTRATION [None]
  - MALAISE [None]
  - RESTLESSNESS [None]
